FAERS Safety Report 5555089-3 (Version None)
Quarter: 2007Q4

REPORT INFORMATION
  Report Type: 
  Country: None (occurrence: None)
  Receive Date: 20071213
  Receipt Date: 20070808
  Transmission Date: 20080405
  Serious: No
  Sender: FDA-Public Use
  Company Number: US-AMGEN-KDL236568

PATIENT
  Sex: Female

DRUGS (1)
  1. ENBREL [Suspect]
     Indication: RHEUMATOID ARTHRITIS
     Route: 058
     Dates: start: 20050601

REACTIONS (10)
  - AUTOIMMUNE THYROIDITIS [None]
  - BRONCHITIS [None]
  - DRUG ERUPTION [None]
  - JOINT SWELLING [None]
  - MENSTRUAL DISORDER [None]
  - OVARIAN CYST [None]
  - RAYNAUD'S PHENOMENON [None]
  - RHEUMATOID FACTOR INCREASED [None]
  - SINUSITIS [None]
  - WHITE BLOOD CELL COUNT INCREASED [None]
